FAERS Safety Report 8581157-8 (Version None)
Quarter: 2012Q3

REPORT INFORMATION
  Report Type: 
  Country: None (occurrence: None)
  Receive Date: 20120809
  Receipt Date: 20120731
  Transmission Date: 20120928
  Serious: Yes (Hospitalization)
  Sender: FDA-Public Use
  Company Number: BE-COVIDIEN/TYCO HEALTHCARE/MALLINCKRODT-T201202988

PATIENT
  Age: 19 Year
  Sex: Female

DRUGS (6)
  1. LSD [Suspect]
     Indication: SUBSTANCE ABUSE
     Dosage: UNK
  2. BENZODIAZEPINE DERIVATIVES [Suspect]
     Indication: SUBSTANCE USE
     Dosage: UNK
  3. METHADOSE [Suspect]
     Indication: SUBSTANCE ABUSE
     Dosage: UNK
  4. AMPHETAMINES [Suspect]
     Indication: SUBSTANCE USE
     Dosage: UNK
  5. COCAINE [Suspect]
     Indication: SUBSTANCE USE
     Dosage: UNK
  6. ETHANOL [Suspect]
     Indication: SUBSTANCE USE
     Dosage: UNK

REACTIONS (2)
  - LEUKOENCEPHALOPATHY [None]
  - DRUG ABUSE [None]
